FAERS Safety Report 21132064 (Version 1)
Quarter: 2022Q3

REPORT INFORMATION
  Report Type: Spontaneous
  Country: US (occurrence: None)
  Receive Date: 20220726
  Receipt Date: 20220726
  Transmission Date: 20221027
  Serious: Yes (Death)
  Sender: FDA-Public Use
  Company Number: None

PATIENT
  Age: 66 Year
  Sex: Male
  Weight: 45.45 kg

DRUGS (1)
  1. KEYTRUDA [Suspect]
     Active Substance: PEMBROLIZUMAB
     Indication: Non-small cell lung cancer
     Dates: start: 20220519, end: 20220617

REACTIONS (11)
  - General physical health deterioration [None]
  - Plasma cell myeloma [None]
  - Asthenia [None]
  - Immune system disorder [None]
  - Renal disorder [None]
  - Red blood cell count abnormal [None]
  - Platelet count abnormal [None]
  - Blood urine present [None]
  - Haemorrhage urinary tract [None]
  - Oxygen saturation decreased [None]
  - Weight decreased [None]

NARRATIVE: CASE EVENT DATE: 20220606
